FAERS Safety Report 9754531 (Version 2)
Quarter: 2013Q4

REPORT INFORMATION
  Report Type: Spontaneous
  Country: US (occurrence: US)
  Receive Date: 20131213
  Receipt Date: 20131213
  Transmission Date: 20140711
  Serious: No
  Sender: FDA-Public Use
  Company Number: US-GLAXOSMITHKLINE-A0913893A

PATIENT
  Age: 26 Year
  Sex: Female

DRUGS (1)
  1. NICODERM CQ CLEAR 14MG [Suspect]
     Indication: EX-TOBACCO USER
     Dosage: 14MG PER DAY
     Route: 062
     Dates: start: 20110101

REACTIONS (4)
  - Abnormal dreams [Recovered/Resolved]
  - Drug administration error [Recovered/Resolved]
  - Ill-defined disorder [Unknown]
  - Energy increased [Unknown]
